FAERS Safety Report 23177103 (Version 7)
Quarter: 2024Q3

REPORT INFORMATION
  Report Type: Spontaneous
  Country: US (occurrence: US)
  Receive Date: 20231113
  Receipt Date: 20240926
  Transmission Date: 20241016
  Serious: No
  Sender: SANOFI AVENTIS
  Company Number: US-SA-2023SA338175

PATIENT
  Age: 25 Year
  Sex: Male

DRUGS (10)
  1. ALPROLIX [Suspect]
     Active Substance: EFTRENONACOG ALFA
     Indication: Haemarthrosis
     Dosage: 6000 U (+/- 10%), QW MODERATE JOINT BLEEDS AND PROPHYLAXIS
     Route: 042
  2. ALPROLIX [Suspect]
     Active Substance: EFTRENONACOG ALFA
     Indication: Haemarthrosis
     Dosage: 6000 U (+/- 10%), QW MODERATE JOINT BLEEDS AND PROPHYLAXIS
     Route: 042
  3. ALPROLIX [Suspect]
     Active Substance: EFTRENONACOG ALFA
     Indication: Prophylaxis
     Dosage: 6000 U (+/- 10%), PRN MODERATE JOINT BLEEDS AND PROPHYLAXIS
     Route: 042
  4. ALPROLIX [Suspect]
     Active Substance: EFTRENONACOG ALFA
     Indication: Prophylaxis
     Dosage: 6000 U (+/- 10%), PRN MODERATE JOINT BLEEDS AND PROPHYLAXIS
     Route: 042
  5. ALPROLIX [Suspect]
     Active Substance: EFTRENONACOG ALFA
     Dosage: 5702 UNITS/6000 UNITS, PRN
     Route: 042
  6. ALPROLIX [Suspect]
     Active Substance: EFTRENONACOG ALFA
     Dosage: 5702 UNITS/6000 UNITS, PRN
     Route: 042
  7. ALPROLIX [Suspect]
     Active Substance: EFTRENONACOG ALFA
     Dosage: 5702 UNITS/6000 UNITS, QW
     Route: 042
  8. ALPROLIX [Suspect]
     Active Substance: EFTRENONACOG ALFA
     Dosage: 5702 UNITS/6000 UNITS, QW
     Route: 042
  9. ALPROLIX [Suspect]
     Active Substance: EFTRENONACOG ALFA
     Dosage: 6000 IU
     Route: 042
  10. ALPROLIX [Suspect]
     Active Substance: EFTRENONACOG ALFA
     Dosage: 6000 IU
     Route: 042

REACTIONS (15)
  - Haemorrhage [Recovered/Resolved]
  - Arthralgia [Unknown]
  - Joint swelling [Unknown]
  - Haemorrhage [Unknown]
  - Fall [Unknown]
  - Pain [Unknown]
  - Contusion [Unknown]
  - Infusion site extravasation [Unknown]
  - Glossodynia [Unknown]
  - Fall [Unknown]
  - Face injury [Unknown]
  - Contusion [Unknown]
  - Traumatic haemorrhage [Recovered/Resolved]
  - Eye contusion [Unknown]
  - Swelling face [Unknown]

NARRATIVE: CASE EVENT DATE: 20231025
